FAERS Safety Report 10049986 (Version 2)
Quarter: 2014Q2

REPORT INFORMATION
  Report Type: Spontaneous
  Country: JP (occurrence: JP)
  Receive Date: 20140401
  Receipt Date: 20140603
  Transmission Date: 20141212
  Serious: No
  Sender: FDA-Public Use
  Company Number: JP-B.I. PHARMACEUTICALS,INC./RIDGEFIELD-2014-BI-14298NB

PATIENT
  Age: 87 Year
  Sex: Female
  Weight: 50 kg

DRUGS (11)
  1. PRAZAXA [Suspect]
     Indication: ATRIAL FIBRILLATION
     Dosage: 220 MG
     Route: 048
     Dates: start: 20140213, end: 20140312
  2. LASIX [Concomitant]
     Dosage: 30 MG
     Route: 048
  3. ALDACTONE A [Concomitant]
     Dosage: 50 MG
     Route: 048
  4. BAYASPIRIN [Concomitant]
     Dosage: 100 MG
     Route: 048
  5. OLMETEC [Concomitant]
     Dosage: 10 MG
     Route: 048
  6. MAGNESIUM OXIDE [Concomitant]
     Indication: FUNCTIONAL GASTROINTESTINAL DISORDER
     Dosage: 1.5 G
     Route: 048
     Dates: start: 20040109
  7. MUCOSTA [Concomitant]
     Indication: FUNCTIONAL GASTROINTESTINAL DISORDER
     Dosage: 300 MG
     Route: 048
     Dates: start: 20140303
  8. GASMOTIN [Concomitant]
     Indication: FUNCTIONAL GASTROINTESTINAL DISORDER
     Dosage: 15 MG
     Route: 048
     Dates: start: 20040109
  9. ATENOLOL [Concomitant]
     Dosage: DAILY DOSE: 25MG/1TIME/1HOUR
     Route: 048
  10. ATORVASTATIN [Concomitant]
     Dosage: 5 MG
     Route: 048
  11. SODIUM RABEPRAZOLE [Concomitant]
     Indication: GASTROOESOPHAGEAL REFLUX DISEASE
     Dosage: 10 MG
     Route: 048
     Dates: start: 20130624

REACTIONS (1)
  - Oesophageal mucosal dissection [Not Recovered/Not Resolved]
